FAERS Safety Report 23911414 (Version 1)
Quarter: 2024Q2

REPORT INFORMATION
  Report Type: Spontaneous
  Country: IN (occurrence: IN)
  Receive Date: 20240528
  Receipt Date: 20240528
  Transmission Date: 20240716
  Serious: Yes (Other)
  Sender: FDA-Public Use
  Company Number: IN-SANDOZ-SDZ2024IN052523

PATIENT
  Sex: Male

DRUGS (1)
  1. TACROLIMUS [Suspect]
     Active Substance: TACROLIMUS
     Indication: Renal transplant
     Dosage: 1 MG, BID
     Route: 048
     Dates: start: 20201215

REACTIONS (8)
  - Loss of consciousness [Unknown]
  - Bradycardia [Unknown]
  - Syncope [Unknown]
  - Myocardial necrosis [Unknown]
  - Renal tubular injury [Unknown]
  - Atrioventricular block second degree [Unknown]
  - Toxicity to various agents [Unknown]
  - Focal segmental glomerulosclerosis [Unknown]
